FAERS Safety Report 18671740 (Version 1)
Quarter: 2020Q4

REPORT INFORMATION
  Report Type: Spontaneous
  Country: FR (occurrence: FR)
  Receive Date: 20201229
  Receipt Date: 20201229
  Transmission Date: 20210114
  Serious: Yes (Hospitalization, Other)
  Sender: FDA-Public Use
  Company Number: FR-AUROBINDO-AUR-APL-2020-063093

PATIENT
  Age: 77 Year
  Sex: Male
  Weight: 74 kg

DRUGS (7)
  1. AMIODARONE 200MG TABLETS [Suspect]
     Active Substance: AMIODARONE
     Indication: ATRIAL FIBRILLATION
     Dosage: 200 MILLIGRAM, ONCE A DAY
     Route: 048
  2. MEROPENEM PANPHARMA [Suspect]
     Active Substance: MEROPENEM
     Indication: MEDICAL DEVICE SITE ABSCESS
     Dosage: 3 GRAM, ONCE A DAY
     Route: 042
     Dates: start: 20201207, end: 20201215
  3. KARDEGIC [Suspect]
     Active Substance: ASPIRIN DL-LYSINE
     Indication: PLATELET AGGREGATION INHIBITION
     Dosage: 75 MILLIGRAM, ONCE A DAY
     Route: 065
     Dates: start: 20201114
  4. DAPTOMYCINE MEDAC [Suspect]
     Active Substance: DAPTOMYCIN
     Indication: MEDICAL DEVICE SITE ABSCESS
     Dosage: 700 MILLIGRAM, ONCE A DAY
     Route: 065
     Dates: start: 20201126
  5. FUROSEMIDE RENAUDIN [Suspect]
     Active Substance: FUROSEMIDE
     Indication: POLYURIA
     Dosage: 30 MILLIGRAM, ONCE A DAY
     Route: 048
     Dates: start: 20201210
  6. RIFADINE [Suspect]
     Active Substance: RIFAMPIN
     Indication: MEDICAL DEVICE SITE ABSCESS
     Dosage: 600 MILLIGRAM, ONCE A DAY
     Route: 042
     Dates: start: 20201126
  7. ATORVASTATIN ARROW GENERIQUES FILM-COATED TABLETS 40MG [Suspect]
     Active Substance: ATORVASTATIN
     Indication: HYPERCHOLESTEROLAEMIA
     Dosage: 40 MILLIGRAM, ONCE A DAY
     Route: 048
     Dates: start: 20201115

REACTIONS (1)
  - Encephalopathy [Not Recovered/Not Resolved]

NARRATIVE: CASE EVENT DATE: 20201213
